FAERS Safety Report 23921558 (Version 2)
Quarter: 2024Q2

REPORT INFORMATION
  Report Type: Spontaneous
  Country: TH (occurrence: TH)
  Receive Date: 20240530
  Receipt Date: 20240614
  Transmission Date: 20240715
  Serious: Yes (Other)
  Sender: FDA-Public Use
  Company Number: TH-TEVA-VS-3202504

PATIENT
  Age: 9 Year
  Sex: Female

DRUGS (13)
  1. DOXORUBICIN [Suspect]
     Active Substance: DOXORUBICIN
     Indication: B-cell type acute leukaemia
     Route: 065
  2. CYCLOPHOSPHAMIDE [Suspect]
     Active Substance: CYCLOPHOSPHAMIDE
     Indication: B-cell type acute leukaemia
     Route: 065
  3. ASPARAGINASE [Suspect]
     Active Substance: ASPARAGINASE
     Indication: B-cell type acute leukaemia
     Route: 065
  4. VINCRISTINE [Suspect]
     Active Substance: VINCRISTINE
     Indication: B-cell type acute leukaemia
     Route: 065
  5. METHOTREXATE [Suspect]
     Active Substance: METHOTREXATE
     Indication: B-cell type acute leukaemia
     Route: 037
  6. METHOTREXATE [Suspect]
     Active Substance: METHOTREXATE
     Indication: B-cell type acute leukaemia
     Dosage: PART OF CONSOLIDATION TREATMENT
     Route: 037
  7. VORICONAZOLE [Suspect]
     Active Substance: VORICONAZOLE
     Indication: Disseminated aspergillosis
     Route: 042
  8. PREDNISOLONE [Suspect]
     Active Substance: PREDNISOLONE
     Indication: B-cell type acute leukaemia
     Route: 065
  9. MERCAPTOPURINE [Suspect]
     Active Substance: MERCAPTOPURINE
     Indication: B-cell type acute leukaemia
     Route: 065
  10. PIPERACILLIN SODIUM\TAZOBACTAM SODIUM [Concomitant]
     Active Substance: PIPERACILLIN SODIUM\TAZOBACTAM SODIUM
     Indication: Disseminated aspergillosis
     Route: 065
  11. PIPERACILLIN SODIUM\TAZOBACTAM SODIUM [Concomitant]
     Active Substance: PIPERACILLIN SODIUM\TAZOBACTAM SODIUM
     Indication: Disseminated aspergillosis
     Dosage: RESTARTED
     Route: 065
  12. MEROPENEM [Concomitant]
     Active Substance: MEROPENEM
     Indication: Disseminated aspergillosis
     Route: 065
  13. CYTARABINE [Suspect]
     Active Substance: CYTARABINE
     Indication: B-cell type acute leukaemia
     Route: 065

REACTIONS (3)
  - Disseminated aspergillosis [Recovering/Resolving]
  - Therapy non-responder [Unknown]
  - Pulmonary tuberculosis [Recovering/Resolving]
